FAERS Safety Report 7591590-9 (Version None)
Quarter: 2011Q3

REPORT INFORMATION
  Report Type: 
  Country: None (occurrence: None)
  Receive Date: 20110701
  Receipt Date: 20110701
  Transmission Date: 20111222
  Serious: Yes (Hospitalization)
  Sender: FDA-Public Use
  Company Number: None

PATIENT
  Age: 64 Year
  Sex: Male

DRUGS (15)
  1. ZYLOPRIM [Concomitant]
  2. LASIX [Concomitant]
  3. REVLIMID [Suspect]
     Indication: MULTIPLE MYELOMA
     Dosage: 10 MG QDX21D/28D ORALLY
     Route: 048
     Dates: start: 20110201, end: 20110501
  4. INSULIN [Concomitant]
  5. PAXIL [Concomitant]
  6. PRILOSEC [Concomitant]
  7. ATENOLOL [Concomitant]
  8. ZOCOR [Concomitant]
  9. ZOFRAN [Concomitant]
  10. ZOFRAN [Concomitant]
  11. AGGRENOX [Concomitant]
  12. NEURONTIN [Concomitant]
  13. GLUCOTROL [Concomitant]
  14. VITAMIN B-12 [Concomitant]
  15. PROCRIT [Concomitant]

REACTIONS (4)
  - PERIRECTAL ABSCESS [None]
  - ASTHENIA [None]
  - SEPSIS [None]
  - NAUSEA [None]
